FAERS Safety Report 6023806-4 (Version None)
Quarter: 2008Q4

REPORT INFORMATION
  Report Type: 
  Country: None (occurrence: None)
  Receive Date: 20081223
  Receipt Date: 20081208
  Transmission Date: 20090506
  Serious: Yes (Hospitalization)
  Sender: FDA-Public Use
  Company Number: 2008002474

PATIENT
  Age: 68 Year
  Sex: Female
  Weight: 59 kg

DRUGS (14)
  1. ERLOTINIB (ERLOTINIB) (TABLET) (ERLOTINIB) [Suspect]
     Indication: LUNG ADENOCARCINOMA
     Dosage: (150 MG, QD) ,ORAL
     Route: 048
     Dates: start: 20080515, end: 20080909
  2. LENDORM [Concomitant]
  3. ALOSENN (ALOSENN) [Concomitant]
  4. MAGNESIUM OXIDE (MAGNESIUM OXIDE) [Concomitant]
  5. DIOVAN [Concomitant]
  6. LOXONIN (LOXOPROFEN SODIUM) [Concomitant]
  7. RHYTHMY (RILMAZAFONE) [Concomitant]
  8. GASTER D [Concomitant]
  9. ACTONEL [Concomitant]
  10. ZOMETA [Concomitant]
  11. SODIUM HYALURONATE (HYALURONATE SODIUM) [Concomitant]
  12. ASTOMIN (DIMEMORFAN PHOSPHATE) [Concomitant]
  13. KAKKON-TO (KAKKON-TO) [Concomitant]
  14. DEQUALINIUM CHLORIDE (DEQUALINIUM CHLORIDE) [Concomitant]

REACTIONS (10)
  - DRY SKIN [None]
  - ERYTHEMA MULTIFORME [None]
  - HENOCH-SCHONLEIN PURPURA [None]
  - HYPERBILIRUBINAEMIA [None]
  - PAIN IN EXTREMITY [None]
  - PALMAR-PLANTAR ERYTHRODYSAESTHESIA SYNDROME [None]
  - PARONYCHIA [None]
  - PNEUMOCYSTIS JIROVECI PNEUMONIA [None]
  - PNEUMONIA [None]
  - RASH PAPULAR [None]
